FAERS Safety Report 8986742 (Version 1)
Quarter: 2012Q4

REPORT INFORMATION
  Report Type: Spontaneous
  Country: US (occurrence: None)
  Receive Date: 20121109
  Receipt Date: 20121109
  Transmission Date: 20130627
  Serious: Yes (Hospitalization)
  Sender: FDA-Public Use
  Company Number: 2012S1000006

PATIENT
  Sex: Male

DRUGS (4)
  1. CUBICIN [Suspect]
     Indication: PROSTHESIS RELATED INFECTION
     Dosage: 6 MG/KG; Q24H; IV
     Route: 042
     Dates: start: 201112
  2. CUBICIN [Suspect]
     Indication: STAPHYLOCOCCAL INFECTION
     Dosage: 6 MG/KG; Q24H; IV
     Route: 042
     Dates: start: 201112
  3. RIFAMPIN [Suspect]
     Dates: start: 201112
  4. RIFAMPIN [Suspect]
     Dates: start: 201112

REACTIONS (4)
  - Renal failure acute [None]
  - Sepsis [None]
  - Haemodialysis [None]
  - Off label use [None]
